FAERS Safety Report 4550752-5 (Version None)
Quarter: 2004Q4

REPORT INFORMATION
  Report Type: 
  Country: None (occurrence: None)
  Receive Date: 20041217
  Receipt Date: 20040920
  Transmission Date: 20050328
  Serious: No
  Sender: FDA-Public Use
  Company Number: 2004-BP-08555BP

PATIENT
  Age: 80 Year
  Sex: Female

DRUGS (9)
  1. SPIRIVA [Suspect]
     Indication: CHRONIC OBSTRUCTIVE AIRWAYS DISEASE
     Dosage: 18 MCG (18 MCG), IH
     Route: 055
     Dates: start: 20040918, end: 20040920
  2. SPIRIVA [Suspect]
  3. PULMICORT [Concomitant]
  4. ATENOLOL [Concomitant]
  5. PREVACID [Concomitant]
  6. FORADIL [Concomitant]
  7. PROVENTIL (SALBUTAMOL SULFATE) [Concomitant]
  8. XOPENEX [Concomitant]
  9. ALLEGRA [Concomitant]

REACTIONS (6)
  - COUGH [None]
  - DIZZINESS [None]
  - DRY MOUTH [None]
  - GASTROOESOPHAGEAL REFLUX DISEASE [None]
  - HOARSENESS [None]
  - LARYNGITIS [None]
